FAERS Safety Report 8712848 (Version 2)
Quarter: 2012Q4

REPORT INFORMATION
  Report Type: Report from Study
  Country: JP (occurrence: JP)
  Receive Date: 20120808
  Receipt Date: 20120907
  Transmission Date: 20130627
  Serious: Yes (Hospitalization)
  Sender: FDA-Public Use
  Company Number: JP-ASTELLAS-2012JP007327

PATIENT
  Age: 79 Year
  Sex: Male
  Weight: 56 kg

DRUGS (8)
  1. MIRABEGRON [Suspect]
     Indication: HYPERTONIC BLADDER
     Dosage: 50 mg, UID/QD
     Route: 048
     Dates: start: 20120703, end: 20120716
  2. URIEF [Concomitant]
     Indication: BENIGN PROSTATIC HYPERPLASIA
     Dosage: 80 mg, Unknown/D
     Route: 048
  3. AVOLVE [Concomitant]
     Indication: BENIGN PROSTATIC HYPERPLASIA
     Dosage: 0.5 mg, UID/QD
     Route: 048
  4. HALFDIGOXIN [Concomitant]
     Indication: CARDIAC FAILURE CHRONIC
     Dosage: 0.12 mg, Unknown/D
     Route: 048
  5. BLOPRESS [Concomitant]
     Indication: HYPERTENSION
     Dosage: 4 mg, Unknown/D
     Route: 048
  6. WARFARIN [Concomitant]
     Indication: CARDIAC FAILURE CHRONIC
     Dosage: 1 mg, Unknown/D
     Route: 048
  7. LASIX                              /00032601/ [Concomitant]
     Indication: RENAL IMPAIRMENT
     Dosage: 80 mg, Unknown/D
     Route: 048
  8. ALOSITOL [Concomitant]
     Indication: HYPERURICAEMIA
     Dosage: 100 mg, Unknown/D
     Route: 048

REACTIONS (1)
  - Cardiac failure [Recovered/Resolved]
